FAERS Safety Report 8149007 (Version 2)
Quarter: 2013Q1

REPORT INFORMATION
  Report Type: Spontaneous
  Country: US (occurrence: US)
  Receive Date: 20110922
  Receipt Date: 20130214
  Transmission Date: 20140127
  Serious: Yes (Hospitalization, Other)
  Sender: FDA-Public Use
  Company Number: US-ASTRAZENECA-2011SE12507

PATIENT
  Sex: 0

DRUGS (11)
  1. SEROQUEL [Suspect]
     Dosage: 75 MG 1 TABLET AT BEDTIME OR 50 MG 1 AND 1/2 TABLET AT BEDTIME
     Route: 048
     Dates: start: 20070918
  2. LOPID [Concomitant]
     Indication: BLOOD CHOLESTEROL ABNORMAL
     Route: 048
     Dates: start: 20070918
  3. CHANTIX [Concomitant]
     Dosage: 0.5-1 MG TWICE DAY
     Dates: start: 20070918
  4. ASPIRIN [Concomitant]
     Route: 048
     Dates: start: 20070918
  5. LISINOPRIL [Concomitant]
     Route: 048
     Dates: start: 20070918
  6. HUMIBID DM [Concomitant]
     Dosage: 1 TABLET
     Route: 048
     Dates: start: 20070918
  7. PROTONIX [Concomitant]
     Route: 048
     Dates: start: 20070918
  8. CYMBALTA [Concomitant]
     Route: 048
     Dates: start: 20070918
  9. FLOMAX [Concomitant]
     Route: 048
     Dates: start: 20070918
  10. BENICAR [Concomitant]
     Dates: start: 20070918
  11. HYDROCHLOROTHIAZIDE [Concomitant]
     Route: 048
     Dates: start: 20070918

REACTIONS (4)
  - Pancreatitis [Unknown]
  - Diabetic coma [Unknown]
  - Type 2 diabetes mellitus [Unknown]
  - Fatigue [Unknown]
